FAERS Safety Report 4360384-X (Version None)
Quarter: 2004Q2

REPORT INFORMATION
  Report Type: 
  Country: None (occurrence: None)
  Receive Date: 20040519
  Receipt Date: 20040326
  Transmission Date: 20050107
  Serious: Yes (Other)
  Sender: FDA-Public Use
  Company Number: DE-MERCK-0403DEU00184

PATIENT
  Age: 54 Year
  Sex: Female

DRUGS (6)
  1. ACIPIMOX [Concomitant]
     Route: 048
  2. GLYBURIDE [Concomitant]
     Route: 048
  3. COZAAR [Suspect]
     Indication: HYPERTENSION
     Route: 048
     Dates: start: 20020301, end: 20040324
  4. METFORMIN HYDROCHLORIDE [Concomitant]
     Route: 048
  5. ROSIGLITAZONE MALEATE [Concomitant]
     Route: 048
  6. XIPAMIDE [Concomitant]
     Route: 047

REACTIONS (2)
  - HAEMATOMA [None]
  - PLATELET COUNT DECREASED [None]
